FAERS Safety Report 23177144 (Version 1)
Quarter: 2023Q4

REPORT INFORMATION
  Report Type: Spontaneous
  Country: US (occurrence: None)
  Receive Date: 20231110
  Receipt Date: 20231110
  Transmission Date: 20240109
  Serious: Yes (unspecified)
  Sender: FDA-Public Use
  Company Number: None

PATIENT
  Age: 46 Year
  Sex: Male

DRUGS (2)
  1. MAVYRET [Suspect]
     Active Substance: GLECAPREVIR\PIBRENTASVIR
     Dosage: OTHER QUANTITY : 100-40MG;?OTHER FREQUENCY : 3 TABLETS ONCE;?
  2. NADOLOL [Suspect]
     Active Substance: NADOLOL

REACTIONS (3)
  - Dizziness [None]
  - Impaired driving ability [None]
  - Hypotension [None]
